FAERS Safety Report 5306107-9 (Version None)
Quarter: 2007Q2

REPORT INFORMATION
  Report Type: 
  Country: None (occurrence: None)
  Receive Date: 20070424
  Receipt Date: 20070105
  Transmission Date: 20071010
  Serious: Yes (Death)
  Sender: FDA-Public Use
  Company Number: US-BRISTOL-MYERS SQUIBB COMPANY-13635511

PATIENT
  Sex: Female

DRUGS (1)
  1. PARAPLATIN SOLN [Suspect]

REACTIONS (1)
  - DEATH [None]
